FAERS Safety Report 19773747 (Version 2)
Quarter: 2025Q1

REPORT INFORMATION
  Report Type: Spontaneous
  Country: CA (occurrence: CA)
  Receive Date: 20210901
  Receipt Date: 20250326
  Transmission Date: 20250408
  Serious: Yes (Other)
  Sender: ALKEM
  Company Number: GR-ALKEM LABORATORIES LIMITED-GR-ALKEM-2021-03646

PATIENT
  Age: 79 Year
  Sex: Male

DRUGS (3)
  1. COLCHICINE [Interacting]
     Active Substance: COLCHICINE
     Indication: Gout
     Dosage: 0.6 MILLIGRAM, QD
     Route: 065
  2. COLCHICINE [Interacting]
     Active Substance: COLCHICINE
     Dosage: 1.2 MILLIGRAM, QD
     Route: 065
  3. SIMVASTATIN [Interacting]
     Active Substance: SIMVASTATIN
     Indication: Product used for unknown indication
     Dosage: 40 MILLIGRAM, QD
     Route: 065

REACTIONS (4)
  - Rhabdomyolysis [Unknown]
  - Musculoskeletal toxicity [Unknown]
  - Drug interaction [Unknown]
  - Myopathy [Unknown]
